FAERS Safety Report 15991754 (Version 6)
Quarter: 2020Q1

REPORT INFORMATION
  Report Type: Spontaneous
  Country: US (occurrence: US)
  Receive Date: 20190221
  Receipt Date: 20200204
  Transmission Date: 20200409
  Serious: Yes (Other)
  Sender: FDA-Public Use
  Company Number: US-ASTRAZENECA-2018SF21758

PATIENT
  Age: 66 Year
  Sex: Female
  Weight: 68 kg

DRUGS (41)
  1. NEXIUM [Suspect]
     Active Substance: ESOMEPRAZOLE MAGNESIUM
     Indication: GASTROOESOPHAGEAL REFLUX DISEASE
     Route: 048
     Dates: start: 20140101, end: 20151231
  2. NEXIUM [Suspect]
     Active Substance: ESOMEPRAZOLE MAGNESIUM
     Indication: GASTROOESOPHAGEAL REFLUX DISEASE
     Route: 048
     Dates: start: 20120521
  3. TUMS [Concomitant]
     Active Substance: CALCIUM CARBONATE
     Dates: start: 2009, end: 2013
  4. CLARITIN [Concomitant]
     Active Substance: LORATADINE
  5. VERSED [Concomitant]
     Active Substance: MIDAZOLAM HYDROCHLORIDE
  6. LISINOPRIL. [Concomitant]
     Active Substance: LISINOPRIL
     Route: 048
  7. HEPARIN [Concomitant]
     Active Substance: HEPARIN SODIUM
  8. HYTRIN [Concomitant]
     Active Substance: TERAZOSIN HYDROCHLORIDE
  9. PLAVIX [Concomitant]
     Active Substance: CLOPIDOGREL BISULFATE
  10. ANCEF [Concomitant]
     Active Substance: CEFAZOLIN SODIUM
  11. KETALAR [Concomitant]
     Active Substance: KETAMINE HYDROCHLORIDE
  12. DIPRIVAN [Concomitant]
     Active Substance: PROPOFOL
  13. FENTANYL. [Concomitant]
     Active Substance: FENTANYL
     Route: 065
  14. PEPTO-BISMOL [Concomitant]
     Active Substance: BISMUTH SUBSALICYLATE
     Dates: start: 2009, end: 2013
  15. MORPHINE SULFATE. [Concomitant]
     Active Substance: MORPHINE SULFATE
  16. HYDRALAZINE [Concomitant]
     Active Substance: HYDRALAZINE HYDROCHLORIDE
  17. NORCO [Concomitant]
     Active Substance: ACETAMINOPHEN\HYDROCODONE BITARTRATE
  18. NORVASC [Concomitant]
     Active Substance: AMLODIPINE BESYLATE
  19. APRESOLINE HYDROCHLORIDE [Concomitant]
     Active Substance: HYDRALAZINE HYDROCHLORIDE
  20. LIDOCAINE. [Concomitant]
     Active Substance: LIDOCAINE
  21. TUMS [Concomitant]
     Active Substance: CALCIUM CARBONATE
     Dates: start: 2014
  22. WELLBUTRIN [Concomitant]
     Active Substance: BUPROPION HYDROCHLORIDE
  23. ZOLOFT [Concomitant]
     Active Substance: SERTRALINE HYDROCHLORIDE
  24. GABAPENTIN. [Concomitant]
     Active Substance: GABAPENTIN
  25. LOPRESSOR [Concomitant]
     Active Substance: METOPROLOL TARTRATE
  26. ULTRAM [Concomitant]
     Active Substance: TRAMADOL HYDROCHLORIDE
     Route: 048
  27. ACETAMINOPHEN. [Concomitant]
     Active Substance: ACETAMINOPHEN
  28. ZOCOR [Concomitant]
     Active Substance: SIMVASTATIN
  29. LANTUS [Concomitant]
     Active Substance: INSULIN GLARGINE
  30. INSULIN GLULISINE [Concomitant]
     Active Substance: INSULIN GLULISINE
     Route: 065
  31. FLEXERIL [Concomitant]
     Active Substance: CYCLOBENZAPRINE HYDROCHLORIDE
     Route: 048
  32. CELEBREX [Concomitant]
     Active Substance: CELECOXIB
     Route: 048
  33. HYDROCHLOROTHIAZIDE. [Concomitant]
     Active Substance: HYDROCHLOROTHIAZIDE
  34. VALSARTAN. [Concomitant]
     Active Substance: VALSARTAN
     Route: 048
  35. PEPTO-BISMOL [Concomitant]
     Active Substance: BISMUTH SUBSALICYLATE
     Dates: start: 2014
  36. RENAGEL [Concomitant]
     Active Substance: SEVELAMER HYDROCHLORIDE
  37. POLYETHYLENE GLYCOL [Concomitant]
     Active Substance: POLYETHYLENE GLYCOLS
  38. AMMONIUM LACTATE. [Concomitant]
     Active Substance: AMMONIUM LACTATE
     Route: 065
  39. ONDANSETRON [Concomitant]
     Active Substance: ONDANSETRON
  40. CLOPIDOGREL [Concomitant]
     Active Substance: CLOPIDOGREL BISULFATE
  41. CEFAZOLIN [Concomitant]
     Active Substance: CEFAZOLIN
     Route: 065

REACTIONS (6)
  - Chronic kidney disease [Not Recovered/Not Resolved]
  - Renal failure [Unknown]
  - Renal injury [Unknown]
  - Acute kidney injury [Not Recovered/Not Resolved]
  - Nephrogenic anaemia [Unknown]
  - End stage renal disease [Not Recovered/Not Resolved]

NARRATIVE: CASE EVENT DATE: 2014
